FAERS Safety Report 24784233 (Version 1)
Quarter: 2024Q4

REPORT INFORMATION
  Report Type: Spontaneous
  Country: NG (occurrence: NG)
  Receive Date: 20241227
  Receipt Date: 20241227
  Transmission Date: 20250115
  Serious: Yes (Life-Threatening, Other)
  Sender: PFIZER
  Company Number: NG-PFIZER INC-PV202400166439

PATIENT
  Age: 37 Year
  Sex: Female

DRUGS (1)
  1. MISOPROSTOL [Suspect]
     Active Substance: MISOPROSTOL
     Dosage: UNK; INSERTED INTO HER VAGINA BY THE TBA
     Route: 067

REACTIONS (3)
  - Contraindicated product administered [Unknown]
  - Uterine rupture [Unknown]
  - Off label use [Unknown]
